FAERS Safety Report 21974465 (Version 1)
Quarter: 2023Q1

REPORT INFORMATION
  Report Type: Report from Study
  Country: BR (occurrence: BR)
  Receive Date: 20230209
  Receipt Date: 20230209
  Transmission Date: 20230418
  Serious: Yes (Other)
  Sender: FDA-Public Use
  Company Number: BR-BAYER-2023A016007

PATIENT
  Age: 85 Year
  Sex: Male

DRUGS (4)
  1. NEXAVAR [Suspect]
     Active Substance: SORAFENIB
     Indication: Hepatocellular carcinoma
     Dosage: 4 DF, QD
  2. NEXAVAR [Suspect]
     Active Substance: SORAFENIB
     Indication: Hepatocellular carcinoma
     Dosage: 1 DF, QD
  3. AMLODIPINE MALEATE [Concomitant]
     Active Substance: AMLODIPINE MALEATE
     Indication: Hypertension
     Dosage: 10 MG
  4. DIPIRONA SODICA [Concomitant]
     Indication: Pain
     Dosage: 500 MG

REACTIONS (4)
  - Infarction [None]
  - Vision blurred [None]
  - Aphasia [None]
  - Chest pain [None]

NARRATIVE: CASE EVENT DATE: 20230123
